FAERS Safety Report 10641369 (Version 1)
Quarter: 2014Q4

REPORT INFORMATION
  Report Type: Report from Study
  Country: BR (occurrence: BR)
  Receive Date: 20141209
  Receipt Date: 20141209
  Transmission Date: 20150529
  Serious: Yes (Death, Life-Threatening, Other)
  Sender: FDA-Public Use
  Company Number: PHHY2014BR160458

PATIENT
  Age: 73 Year
  Sex: Male
  Weight: 78 kg

DRUGS (7)
  1. EXELON PATCH [Suspect]
     Active Substance: RIVASTIGMINE
     Indication: DEMENTIA ALZHEIMER^S TYPE
     Dosage: 4.6 MG, QD (9MG/5CM2 DAILY)
     Route: 062
     Dates: start: 201402
  2. PANTOPRAZOLE [Concomitant]
     Active Substance: PANTOPRAZOLE SODIUM
     Indication: PRODUCT USED FOR UNKNOWN INDICATION
     Route: 065
  3. SELOZOK [Concomitant]
     Active Substance: METOPROLOL SUCCINATE
     Indication: COAGULOPATHY
     Dosage: 1 DF, QD
     Route: 065
     Dates: start: 2011, end: 20141201
  4. SUSTRATE [Concomitant]
     Active Substance: PROPATYL NITRATE
     Indication: ISCHAEMIC HEART DISEASE PROPHYLAXIS
     Dosage: 1 DF, QD
     Route: 065
     Dates: start: 2001, end: 20141130
  5. ACETYLSALICYLIC ACID [Concomitant]
     Active Substance: ASPIRIN
     Indication: COAGULOPATHY
     Dosage: 1 DF, QD
     Route: 065
     Dates: start: 2001, end: 20141130
  6. SELOKEN [Concomitant]
     Active Substance: METOPROLOL
     Indication: PRODUCT USED FOR UNKNOWN INDICATION
     Route: 065
  7. EXELON PATCH [Suspect]
     Active Substance: RIVASTIGMINE
     Dosage: 13.3 MG, QD (27MG/15CM2 DAILY / FREE SAMPLES)
     Route: 062
     Dates: end: 20141130

REACTIONS (7)
  - Cold sweat [Unknown]
  - Cardiac arrest [Fatal]
  - Malaise [Unknown]
  - Memory impairment [Unknown]
  - Infarction [Fatal]
  - Chest pain [Unknown]
  - Retching [Unknown]

NARRATIVE: CASE EVENT DATE: 20141201
